FAERS Safety Report 14745235 (Version 1)
Quarter: 2018Q2

REPORT INFORMATION
  Report Type: Spontaneous
  Country: BG (occurrence: BG)
  Receive Date: 20180411
  Receipt Date: 20180411
  Transmission Date: 20180711
  Serious: Yes (Other)
  Sender: FDA-Public Use
  Company Number: BG-AMGEN-BGRSP2018029186

PATIENT
  Sex: Female

DRUGS (4)
  1. ARCOXIA [Concomitant]
     Active Substance: ETORICOXIB
     Indication: EXPOSURE DURING PREGNANCY
     Dosage: 90 MG, UNK
     Route: 050
     Dates: start: 201304
  2. DIPROPHOS [Concomitant]
     Active Substance: BETAMETHASONE DIPROPIONATE\BETAMETHASONE SODIUM PHOSPHATE
     Indication: EXPOSURE DURING PREGNANCY
     Dosage: UNK UNK, AS NECESSARY
     Route: 050
     Dates: start: 201304
  3. MYDOCALM (TOLPERISONE HYDROCHLORIDE) [Concomitant]
     Active Substance: TOLPERISONE HYDROCHLORIDE
     Indication: EXPOSURE DURING PREGNANCY
     Dosage: UNK UNK, TID
     Route: 050
     Dates: start: 201304
  4. ENBREL [Suspect]
     Active Substance: ETANERCEPT
     Indication: EXPOSURE DURING PREGNANCY
     Dosage: 50 MG, QWK
     Route: 050
     Dates: start: 201304

REACTIONS (2)
  - Paternal exposure timing unspecified [Recovered/Resolved]
  - Abortion spontaneous [Recovered/Resolved]
